FAERS Safety Report 10190933 (Version 1)
Quarter: 2014Q2

REPORT INFORMATION
  Report Type: Spontaneous
  Country: US (occurrence: None)
  Receive Date: 20140521
  Receipt Date: 20140521
  Transmission Date: 20141212
  Serious: Yes (Hospitalization)
  Sender: FDA-Public Use
  Company Number: None

PATIENT
  Age: 77 Year
  Sex: Male
  Weight: 88 kg

DRUGS (9)
  1. XARELTO [Suspect]
     Indication: ATRIAL FIBRILLATION
     Dosage: ABOUT 3 WEEKS, 1 TABLET, QD, ORAL
     Route: 048
  2. ASPIRIN 81MG [Suspect]
     Indication: PLATELET DISORDER
     Dosage: 1 TABLET, QD, ORAL
     Route: 048
  3. ATORVASTATIN [Concomitant]
  4. CARVEDILOL [Concomitant]
  5. CHOLECALCIFEROL [Concomitant]
  6. CYANOCOBALAMIN [Concomitant]
  7. INSULIN [Concomitant]
  8. OLMESARTAN/HCTZ [Concomitant]
  9. PANTOPRAZOLE [Concomitant]

REACTIONS (5)
  - Gastrointestinal haemorrhage [None]
  - Haematochezia [None]
  - Fatigue [None]
  - Anaemia [None]
  - Contusion [None]
